FAERS Safety Report 6031181-4 (Version None)
Quarter: 2008Q4

REPORT INFORMATION
  Report Type: 
  Country: None (occurrence: None)
  Receive Date: 20081224
  Receipt Date: 20071114
  Transmission Date: 20090506
  Serious: Yes (Other)
  Sender: FDA-Public Use
  Company Number: 20070301  /

PATIENT
  Age: 62 Year
  Sex: Female

DRUGS (1)
  1. VENOFER [Suspect]
     Indication: ANAEMIA
     Dosage: 200 MG INTRAVENOUS
     Route: 042
     Dates: start: 20071114, end: 20071114

REACTIONS (3)
  - BACK PAIN [None]
  - CHEST PAIN [None]
  - INJECTION SITE RASH [None]
